FAERS Safety Report 6466805 (Version 2)
Quarter: 2013Q4

REPORT INFORMATION
  Report Type: Spontaneous
  Country: ZA (occurrence: ZA)
  Receive Date: 20071114
  Receipt Date: 20131115
  Transmission Date: 20140711
  Serious: Yes (Life-Threatening, Other)
  Sender: FDA-Public Use
  Company Number: ZA-JNJFOC-20071102130

PATIENT
  Age: 42 Year
  Sex: Male

DRUGS (3)
  1. INFLIXIMAB [Suspect]
     Indication: FISTULA
     Dosage: 5 MG/KG AT WEEKS 1, 2 AND 6
     Route: 042
  2. INFLIXIMAB [Suspect]
     Indication: CROHN^S DISEASE
     Dosage: 5 MG/KG AT WEEKS 1, 2 AND 6
     Route: 042
  3. AZATHIOPRINE [Concomitant]
     Indication: CROHN^S DISEASE

REACTIONS (1)
  - Acute leukaemia [Recovering/Resolving]
